FAERS Safety Report 6517012-4 (Version None)
Quarter: 2009Q4

REPORT INFORMATION
  Report Type: 
  Country: None (occurrence: None)
  Receive Date: 20091223
  Receipt Date: 20091217
  Transmission Date: 20100525
  Serious: Yes (Life-Threatening, Hospitalization)
  Sender: FDA-Public Use
  Company Number: GXKR2007GB07491

PATIENT
  Age: 72 Year
  Sex: Male

DRUGS (12)
  1. ITRACONAZOLE (NGX) [Suspect]
     Dosage: 140 MG, BID
     Route: 065
     Dates: start: 20070808
  2. ISOPTIN - SLOW RELEASE [Interacting]
     Dosage: 120 MG, QD
     Route: 048
     Dates: start: 20070814, end: 20070817
  3. ACICLOVIR [Concomitant]
     Dosage: 200 MG, UNK
     Route: 048
     Dates: start: 20070807
  4. ALLOPURINOL [Concomitant]
     Dosage: 100 MG, UNK
     Route: 048
     Dates: start: 20070816
  5. ACETYLSALICYLIC ACID [Concomitant]
     Dosage: 150 MG, UNK
     Route: 048
     Dates: start: 20070807
  6. CISPLATIN [Concomitant]
     Dosage: 1575 MG, UNK
     Route: 042
     Dates: start: 20070809
  7. CISPLATIN [Concomitant]
     Dosage: 77 MG, UNK
     Route: 042
     Dates: start: 20070810
  8. LANSOPRAZOLE [Concomitant]
     Dosage: 30 MG, QD
     Route: 048
     Dates: start: 20070807
  9. LEVOTHYROXINE SODIUM [Concomitant]
     Dosage: 75 UG, QD
     Route: 048
     Dates: start: 20070807
  10. MEROPENEM [Concomitant]
     Dosage: 1 G, QD
     Route: 042
     Dates: start: 20070816
  11. PRAMIPEXOLE DIHYDROCHLORIDE [Concomitant]
     Dosage: 500 UG, QID
     Route: 048
     Dates: start: 20070807
  12. RITUXIMAB [Concomitant]
     Dosage: 600 MG, UNK
     Route: 042
     Dates: start: 20070808

REACTIONS (2)
  - BRADYCARDIA [None]
  - REPERFUSION ARRHYTHMIA [None]
